FAERS Safety Report 5403549-8 (Version None)
Quarter: 2007Q3

REPORT INFORMATION
  Report Type: 
  Country: None (occurrence: None)
  Receive Date: 20070730
  Receipt Date: 20070717
  Transmission Date: 20080115
  Serious: Yes (Hospitalization)
  Sender: FDA-Public Use
  Company Number: 02100-JPN-07-0359

PATIENT
  Sex: Male

DRUGS (7)
  1. CILOSTAZOL [Suspect]
     Indication: ARTERIOSCLEROSIS OBLITERANS
     Dosage: 200 MG
     Route: 048
  2. LORNOXICAM [Suspect]
     Indication: HERPES ZOSTER
     Dosage: 12 MG
     Route: 048
  3. ASPIRIN [Suspect]
     Dosage: 100 MG
     Route: 048
  4. DILTIAZEM HYDROCHLORIDE [Concomitant]
  5. CARVEDILOL [Concomitant]
  6. ETIZOLAM [Concomitant]
  7. ALLOPURINOL [Concomitant]

REACTIONS (1)
  - GASTRIC ULCER HAEMORRHAGE [None]
